FAERS Safety Report 4709953-5 (Version None)
Quarter: 2005Q3

REPORT INFORMATION
  Report Type: 
  Country: None (occurrence: None)
  Receive Date: 20050708
  Receipt Date: 20050627
  Transmission Date: 20060218
  Serious: Yes (Hospitalization)
  Sender: FDA-Public Use
  Company Number: US-JNJFOC-20050606797

PATIENT
  Sex: Female
  Weight: 81.65 kg

DRUGS (5)
  1. DOXIL [Suspect]
     Indication: OVARIAN CANCER
     Dosage: X 3 CYCLES
     Route: 042
  2. COUMADIN [Concomitant]
  3. LOTREL [Concomitant]
  4. LOTREL [Concomitant]
  5. LIPITOR [Concomitant]

REACTIONS (8)
  - CARBOHYDRATE ANTIGEN 125 INCREASED [None]
  - CARDIAC VALVE DISEASE [None]
  - CEREBROVASCULAR ACCIDENT [None]
  - DRUG LEVEL BELOW THERAPEUTIC [None]
  - ERYTHEMA [None]
  - SKIN EXFOLIATION [None]
  - SKIN INFLAMMATION [None]
  - TRANSIENT ISCHAEMIC ATTACK [None]
